FAERS Safety Report 20430082 (Version 1)
Quarter: 2022Q1

REPORT INFORMATION
  Report Type: Report from Study
  Country: FR (occurrence: FR)
  Receive Date: 20220204
  Receipt Date: 20220204
  Transmission Date: 20220423
  Serious: Yes (Other)
  Sender: FDA-Public Use
  Company Number: FR-SERVIER-S20001640

PATIENT

DRUGS (5)
  1. ONCASPAR [Suspect]
     Active Substance: PEGASPARGASE
     Indication: Acute lymphocytic leukaemia
     Dosage: 800 IU QD, ON D4
     Route: 042
     Dates: start: 20190923, end: 20190923
  2. TN UNSPECIFIED [Concomitant]
     Indication: Acute lymphocytic leukaemia
     Dosage: 0.9 MG, ON D1, D8, D15
     Route: 042
     Dates: start: 20190920, end: 20191004
  3. ADRIAMYCIN [Concomitant]
     Active Substance: DOXORUBICIN HYDROCHLORIDE
     Indication: Acute lymphocytic leukaemia
     Dosage: 16 MG, ON D1, D8, D15
     Route: 042
     Dates: start: 20190920, end: 20191004
  4. TN UNSPECIFIED [Concomitant]
     Indication: Acute lymphocytic leukaemia
     Dosage: 6 MG QD FROM D1 TO D15
     Route: 048
     Dates: start: 20190920, end: 20191004
  5. TN UNSPECIFIED [Concomitant]
     Indication: Acute lymphocytic leukaemia
     Dosage: 12 MG, ON D4
     Route: 037
     Dates: start: 20190923

REACTIONS (1)
  - Hyperlipidaemia [Recovering/Resolving]

NARRATIVE: CASE EVENT DATE: 20191007
